FAERS Safety Report 22646537 (Version 1)
Quarter: 2023Q2

REPORT INFORMATION
  Report Type: Spontaneous
  Country: US (occurrence: US)
  Receive Date: 20230627
  Receipt Date: 20230627
  Transmission Date: 20230722
  Serious: Yes (Hospitalization)
  Sender: FDA-Public Use
  Company Number: US-PFIZER INC-PV202300098790

PATIENT
  Age: 71 Year
  Sex: Female
  Weight: 88.9 kg

DRUGS (3)
  1. RETACRIT [Suspect]
     Active Substance: EPOETIN ALFA-EPBX
     Indication: Nephrogenic anaemia
     Dosage: 1 ML SQ, EVERY 14 DAYS, APPROVED FOR 6 MONTHS.
     Route: 058
     Dates: start: 20230222
  2. RETACRIT [Suspect]
     Active Substance: EPOETIN ALFA-EPBX
     Indication: Renal transplant
     Dosage: TAKEN TWO TIMES A MONTH, EVERY TWO WEEK INJECTED
  3. RETACRIT [Suspect]
     Active Substance: EPOETIN ALFA-EPBX
     Indication: Oxygen consumption

REACTIONS (3)
  - Peripheral arterial occlusive disease [Unknown]
  - Cardiovascular disorder [Unknown]
  - Peripheral pulse decreased [Unknown]

NARRATIVE: CASE EVENT DATE: 20230501
